FAERS Safety Report 4379933-0 (Version None)
Quarter: 2004Q2

REPORT INFORMATION
  Report Type: 
  Country: None (occurrence: None)
  Receive Date: 20040614
  Receipt Date: 20040602
  Transmission Date: 20050107
  Serious: No
  Sender: FDA-Public Use
  Company Number: 04P-013-0260304-00

PATIENT
  Age: 68 Year

DRUGS (5)
  1. KALETRA [Suspect]
     Indication: HIV INFECTION
     Dosage: 3 CAPSULES, 2 IN 1 D, PER ORAL
     Route: 048
     Dates: start: 20040122, end: 20040512
  2. DIDANOSINE [Suspect]
     Indication: HIV INFECTION
     Dosage: 400 MG, 1 IN 1 D, PER ORAL
     Route: 048
     Dates: start: 20040122, end: 20040225
  3. TENOFOVIR [Suspect]
     Indication: HIV INFECTION
     Dosage: PER ORAL
     Route: 048
     Dates: start: 20040122, end: 20040511
  4. EFAVIRENZ [Concomitant]
  5. SAQUINAVIR [Concomitant]

REACTIONS (6)
  - BLOOD ALKALINE PHOSPHATASE INCREASED [None]
  - DRUG INTERACTION [None]
  - FANCONI SYNDROME ACQUIRED [None]
  - GAMMA-GLUTAMYLTRANSFERASE INCREASED [None]
  - LACTIC ACIDOSIS [None]
  - RENAL FAILURE ACUTE [None]
